FAERS Safety Report 10755401 (Version 1)
Quarter: 2015Q1

REPORT INFORMATION
  Report Type: Spontaneous
  Country: US (occurrence: None)
  Receive Date: 20150123
  Receipt Date: 20150123
  Transmission Date: 20150721
  Serious: No
  Sender: FDA-Public Use
  Company Number: 2014TUS008373

PATIENT
  Age: 23 Year
  Sex: Male
  Weight: 56 kg

DRUGS (3)
  1. ENTYVIO [Suspect]
     Active Substance: VEDOLIZUMAB
     Indication: CROHN^S DISEASE
     Dosage: 300 MG, FIRST DOSE
     Route: 042
     Dates: start: 20140828, end: 20140828
  2. TYLENOL /000200001/ (PARACETAMOL) [Concomitant]
  3. BENADRYL/00000402/ (DIPHENHYDRAMINE HYDROCHLORIDE) [Concomitant]

REACTIONS (3)
  - Disorientation [None]
  - Dizziness [None]
  - Abdominal pain [None]

NARRATIVE: CASE EVENT DATE: 20140830
